FAERS Safety Report 24021030 (Version 1)
Quarter: 2024Q2

REPORT INFORMATION
  Report Type: Spontaneous
  Country: US (occurrence: US)
  Receive Date: 20240627
  Receipt Date: 20240627
  Transmission Date: 20240717
  Serious: No
  Sender: FDA-Public Use
  Company Number: US-INCYTE CORPORATION-2024IN006538

PATIENT

DRUGS (2)
  1. JAKAFI [Suspect]
     Active Substance: RUXOLITINIB
     Indication: Thrombocytosis
     Dosage: 10 MILLIGRAM, BID
     Route: 048
  2. HUMIRA [Concomitant]
     Active Substance: ADALIMUMAB
     Indication: Product used for unknown indication
     Dosage: UNK, (2/BOX)
     Route: 065

REACTIONS (4)
  - Pain [Unknown]
  - Headache [Unknown]
  - Nausea [Unknown]
  - Off label use [Unknown]
